FAERS Safety Report 10398442 (Version 1)
Quarter: 2014Q1

REPORT INFORMATION
  Report Type: Spontaneous
  Country: US (occurrence: None)
  Receive Date: 20130815
  Receipt Date: 20130815
  Transmission Date: 20141002
  Serious: Yes (Other)
  Sender: FDA-Public Use
  Company Number: ADR-2010-9801

PATIENT
  Sex: Female

DRUGS (1)
  1. LIORESAL INTRATHECAL (BACLOFEN INJECTION) 500 MCG/ML [Suspect]
     Dosage: 59.92 MCG/DAY; SEE B5

REACTIONS (7)
  - Muscle rigidity [None]
  - Abasia [None]
  - Muscle spasticity [None]
  - Multiple sclerosis [None]
  - No therapeutic response [None]
  - Muscle spasms [None]
  - Asthenia [None]
